FAERS Safety Report 9697420 (Version 1)
Quarter: 2013Q4

REPORT INFORMATION
  Report Type: Spontaneous
  Country: IN (occurrence: IN)
  Receive Date: 20131120
  Receipt Date: 20131120
  Transmission Date: 20140711
  Serious: Yes (Other)
  Sender: FDA-Public Use
  Company Number: IN-JNJFOC-20131107724

PATIENT
  Sex: 0

DRUGS (1)
  1. INFLIXIMAB, RECOMBINANT [Suspect]
     Indication: KAWASAKI^S DISEASE
     Dosage: 5?7 MG/KG
     Route: 042

REACTIONS (3)
  - Juvenile idiopathic arthritis [Unknown]
  - Platelet count decreased [Unknown]
  - Off label use [Unknown]
